FAERS Safety Report 8186881-7 (Version None)
Quarter: 2012Q1

REPORT INFORMATION
  Report Type: 
  Country: None (occurrence: None)
  Receive Date: 20120213
  Receipt Date: 20111121
  Transmission Date: 20120608
  Serious: No
  Sender: FDA-Public Use
  Company Number: 1000015731

PATIENT
  Sex: Female

DRUGS (9)
  1. BUSPIRONE HCL [Concomitant]
  2. SAVELLA [Suspect]
     Indication: DEPRESSION
     Dosage: 12.5 MG (12.5 MG, 1 IN 1 D), 25 MG(12.5 MG, 2 IN 1 D), 50 MG (25 MG, 2 IN 1 D),  ORAL
     Route: 048
     Dates: start: 20100803, end: 20100804
  3. SAVELLA [Suspect]
     Indication: DEPRESSION
     Dosage: 12.5 MG (12.5 MG, 1 IN 1 D), 25 MG(12.5 MG, 2 IN 1 D), 50 MG (25 MG, 2 IN 1 D),  ORAL
     Route: 048
     Dates: start: 20100802, end: 20100802
  4. SAVELLA [Suspect]
     Indication: DEPRESSION
     Dosage: 12.5 MG (12.5 MG, 1 IN 1 D), 25 MG(12.5 MG, 2 IN 1 D), 50 MG (25 MG, 2 IN 1 D),  ORAL
     Route: 048
     Dates: start: 20100805, end: 20100808
  5. SAVELLA [Suspect]
     Indication: DEPRESSION
     Dosage: 100 MG (50 MG, 2 IN 1 D), 25 MG (25 MG, 1 IN 1 D)  ORAL
     Route: 048
     Dates: start: 20100813, end: 20100814
  6. SAVELLA [Suspect]
     Indication: DEPRESSION
     Dosage: 100 MG (50 MG, 2 IN 1 D), 25 MG (25 MG, 1 IN 1 D)  ORAL
     Route: 048
     Dates: start: 20100809, end: 20100812
  7. TRAZODONE HCL [Concomitant]
  8. PLAQUENIL [Concomitant]
  9. LEVOTHYROXINE SODIUM [Concomitant]

REACTIONS (1)
  - FEELING ABNORMAL [None]
